FAERS Safety Report 4756175-8 (Version None)
Quarter: 2005Q3

REPORT INFORMATION
  Report Type: 
  Country: None (occurrence: None)
  Receive Date: 20050830
  Receipt Date: 20040224
  Transmission Date: 20060218
  Serious: No
  Sender: FDA-Public Use
  Company Number: US-GLAXOSMITHKLINE-A0500737A

PATIENT
  Age: 31 Year
  Sex: Female
  Weight: 50.9 kg

DRUGS (3)
  1. WELLBUTRIN XL [Suspect]
     Dosage: 300MG PER DAY
     Route: 048
  2. LEXAPRO [Concomitant]
     Dosage: 10MG UNKNOWN
     Route: 065
  3. IMITREX [Concomitant]
     Indication: MIGRAINE

REACTIONS (5)
  - DIZZINESS [None]
  - HOT FLUSH [None]
  - MIGRAINE [None]
  - URINARY HESITATION [None]
  - WEIGHT INCREASED [None]
